FAERS Safety Report 4883727-7 (Version None)
Quarter: 2006Q1

REPORT INFORMATION
  Report Type: 
  Country: None (occurrence: None)
  Receive Date: 20060113
  Receipt Date: 20051229
  Transmission Date: 20060701
  Serious: Yes (Hospitalization, Other)
  Sender: FDA-Public Use
  Company Number: US_0509122493

PATIENT
  Age: 49 Year
  Sex: Male
  Weight: 138.8 kg

DRUGS (17)
  1. ZYPREXA [Suspect]
     Indication: BIPOLAR DISORDER
     Dosage: SEE IMAGE
     Dates: end: 20051010
  2. ZYPREXA [Suspect]
     Indication: BIPOLAR DISORDER
     Dosage: SEE IMAGE
     Dates: start: 19990325
  3. LAMICTAL [Concomitant]
  4. KLONOPIN [Concomitant]
  5. PAXIL [Concomitant]
  6. HYDROCHLOROTHIAZIDE [Concomitant]
  7. ZOCOR [Concomitant]
  8. LITHIUM CARBONATE [Concomitant]
  9. RISPERDAL /SWE/ (RISPERIDONE) [Concomitant]
  10. INDERAL [Concomitant]
  11. WELLBUTRIN [Concomitant]
  12. PEPCID [Concomitant]
  13. EFFEXOR [Concomitant]
  14. SERZONE [Concomitant]
  15. NORTRIPTYLINE (NORTRIPTYLINE) [Concomitant]
  16. CLARITIN /USA/ (LORATADINE) [Concomitant]
  17. K-DUR 10 [Concomitant]

REACTIONS (17)
  - ABNORMAL DREAMS [None]
  - BLOOD CHOLESTEROL INCREASED [None]
  - CHEST PAIN [None]
  - DEHYDRATION [None]
  - DEPRESSION [None]
  - DIABETES MELLITUS NON-INSULIN-DEPENDENT [None]
  - DRUG WITHDRAWAL SYNDROME [None]
  - FEELING JITTERY [None]
  - GLYCOSYLATED HAEMOGLOBIN INCREASED [None]
  - HEADACHE [None]
  - HYPERLIPIDAEMIA [None]
  - HYPERTENSION [None]
  - HYPOKALAEMIA [None]
  - LOW DENSITY LIPOPROTEIN INCREASED [None]
  - NEURALGIA [None]
  - RENAL FAILURE CHRONIC [None]
  - WEIGHT INCREASED [None]
